FAERS Safety Report 8144553-9 (Version None)
Quarter: 2012Q1

REPORT INFORMATION
  Report Type: 
  Country: None (occurrence: None)
  Receive Date: 20120214
  Receipt Date: 20120208
  Transmission Date: 20120608
  Serious: Yes (Death, Hospitalization, Other)
  Sender: FDA-Public Use
  Company Number: 2010004330

PATIENT
  Age: 85 Year
  Sex: Male
  Weight: 66 kg

DRUGS (9)
  1. MORPHINE SULFATE INJ [Concomitant]
  2. NITROFURANTOIN [Concomitant]
  3. ZOFRAN [Concomitant]
  4. AREDIA [Concomitant]
  5. CLINDAMYCIN [Concomitant]
  6. ERLOTINIB HYDROCHLORIDE [Suspect]
     Indication: NON-SMALL CELL LUNG CANCER RECURRENT
     Dosage: ORAL
     Route: 048
     Dates: start: 20100826
  7. ASPIRIN [Concomitant]
  8. DIOVAN TRIPLE (HYDROCHLOROTHIAZIDE, VALSARTAN AMD AMLODIPINE BESILATE) [Concomitant]
  9. LORTAB [Concomitant]

REACTIONS (14)
  - SYNOVIAL CYST [None]
  - ATRIAL FIBRILLATION [None]
  - VENTRICULAR TACHYCARDIA [None]
  - AORTIC CALCIFICATION [None]
  - WEIGHT DECREASED [None]
  - MENTAL STATUS CHANGES [None]
  - RENAL FAILURE ACUTE [None]
  - DIVERTICULUM [None]
  - HIATUS HERNIA [None]
  - URINARY TRACT INFECTION [None]
  - BLOOD PRESSURE DECREASED [None]
  - SMALL INTESTINAL OBSTRUCTION [None]
  - ABDOMINAL DISTENSION [None]
  - GASTROINTESTINAL HAEMORRHAGE [None]
